FAERS Safety Report 11138654 (Version 2)
Quarter: 2015Q3

REPORT INFORMATION
  Report Type: Report from Study
  Country: US (occurrence: US)
  Receive Date: 20150527
  Receipt Date: 20150814
  Transmission Date: 20151125
  Serious: Yes (Death, Hospitalization)
  Sender: FDA-Public Use
  Company Number: PHHO2013US015074

PATIENT
  Age: 80 Year
  Sex: Male
  Weight: 85 kg

DRUGS (6)
  1. AFINITOR [Suspect]
     Active Substance: EVEROLIMUS
     Indication: METASTATIC MALIGNANT MELANOMA
     Dosage: UNK
     Route: 048
  2. BEVACIZUMAB [Suspect]
     Active Substance: BEVACIZUMAB
     Indication: METASTATIC MALIGNANT MELANOMA
     Dosage: 890 MG, (10MG/KG DAYS 1+15) PER 90 MIN
     Route: 042
  3. TAXOL [Suspect]
     Active Substance: PACLITAXEL
     Dosage: 40 MG/M2, UNK
     Route: 042
  4. CARBOPLATIN. [Suspect]
     Active Substance: CARBOPLATIN
     Dosage: AUC 3
     Route: 065
  5. TAXOL [Suspect]
     Active Substance: PACLITAXEL
     Indication: METASTATIC MALIGNANT MELANOMA
     Dosage: 162 MG, (60 MG/M2 DAYS 1.8.15), PER 60 MIN
     Route: 042
     Dates: start: 20130425, end: 20140530
  6. CARBOPLATIN. [Suspect]
     Active Substance: CARBOPLATIN
     Indication: METASTATIC MALIGNANT MELANOMA
     Dosage: 236 MG, (AUC 5 PER 30 MIN, DAY 1)
     Route: 042
     Dates: start: 20130425, end: 20130523

REACTIONS (1)
  - Pulmonary embolism [Fatal]

NARRATIVE: CASE EVENT DATE: 20131112
